FAERS Safety Report 9704065 (Version 2)
Quarter: 2014Q3

REPORT INFORMATION
  Report Type: Report from Study
  Country: US (occurrence: US)
  Receive Date: 20131122
  Receipt Date: 20140706
  Transmission Date: 20150326
  Serious: Yes (Other)
  Sender: FDA-Public Use
  Company Number: US-ALEXION-A201303605

PATIENT

DRUGS (1)
  1. SOLIRIS [Suspect]
     Active Substance: ECULIZUMAB
     Indication: HAEMOLYTIC URAEMIC SYNDROME
     Dosage: UNK
     Route: 042

REACTIONS (9)
  - Activities of daily living impaired [Unknown]
  - Headache [Recovered/Resolved]
  - Fatigue [Unknown]
  - Aplastic anaemia [Unknown]
  - Venous thrombosis [Unknown]
  - Dyspnoea [Unknown]
  - Quality of life decreased [Unknown]
  - Dysphagia [Unknown]
  - Nasopharyngitis [Unknown]
